FAERS Safety Report 6190060-2 (Version None)
Quarter: 2009Q2

REPORT INFORMATION
  Report Type: 
  Country: None (occurrence: None)
  Receive Date: 20090512
  Receipt Date: 20090512
  Transmission Date: 20091009
  Serious: Yes (Life-Threatening, Other)
  Sender: FDA-Public Use
  Company Number: None

PATIENT
  Age: 51 Year
  Sex: Female
  Weight: 78 kg

DRUGS (2)
  1. TAXOTERE [Suspect]
     Indication: LIP AND/OR ORAL CAVITY CANCER
     Dosage: 132 MG EVERY 3 WEEKS IV
     Route: 042
     Dates: start: 20090501, end: 20090508
  2. TAXOTERE [Suspect]
     Dates: start: 20090501, end: 20090511

REACTIONS (5)
  - ERYTHEMA [None]
  - FEELING HOT [None]
  - FLUSHING [None]
  - HYPERTENSION [None]
  - NAUSEA [None]
